FAERS Safety Report 10175923 (Version 1)
Quarter: 2014Q2

REPORT INFORMATION
  Report Type: Spontaneous
  Country: US (occurrence: None)
  Receive Date: 20140416
  Receipt Date: 20140416
  Transmission Date: 20141212
  Serious: No
  Sender: FDA-Public Use
  Company Number: 163-POMAL-13113567

PATIENT
  Age: 64 Year
  Sex: Female
  Weight: 70.3 kg

DRUGS (11)
  1. POMALYST [Suspect]
     Indication: PLASMA CELL MYELOMA
     Route: 048
     Dates: start: 201310
  2. GREEN TEA (TEA, GREEN) [Concomitant]
  3. FLUOXETINE [Concomitant]
  4. ZYRTEC (CETIRIZINE HYDROCHLORIDE) [Concomitant]
  5. TYLENOL (PARACETAMOL) [Concomitant]
  6. AMLODIPINE [Concomitant]
  7. LOSARTAN [Concomitant]
  8. DEXAMETHASONE [Concomitant]
  9. VICODIN [Concomitant]
  10. METOPROLOL [Concomitant]
  11. ASPIRINE (ACETYLSALICYLIC ACID) [Concomitant]

REACTIONS (2)
  - Oral herpes [None]
  - Influenza [None]
